FAERS Safety Report 12183462 (Version 1)
Quarter: 2016Q1

REPORT INFORMATION
  Report Type: Spontaneous
  Country: US (occurrence: US)
  Receive Date: 20160316
  Receipt Date: 20160316
  Transmission Date: 20160526
  Serious: No
  Sender: FDA-Public Use
  Company Number: US-BAYER-2016-040973

PATIENT
  Age: 81 Year
  Sex: Female

DRUGS (1)
  1. FINACEA [Suspect]
     Active Substance: AZELAIC ACID
     Indication: ROSACEA
     Dosage: UNK UNK, QD
     Route: 061
     Dates: start: 20160225

REACTIONS (4)
  - Erythema [Unknown]
  - Pruritus [Unknown]
  - Acne [Unknown]
  - Product quality issue [None]

NARRATIVE: CASE EVENT DATE: 20160225
